FAERS Safety Report 12978584 (Version 1)
Quarter: 2016Q4

REPORT INFORMATION
  Report Type: Spontaneous
  Country: US (occurrence: US)
  Receive Date: 20161128
  Receipt Date: 20161128
  Transmission Date: 20170207
  Serious: No
  Sender: FDA-Public Use
  Company Number: US-PFIZER INC-2016546325

PATIENT
  Age: 72 Year
  Sex: Female

DRUGS (3)
  1. SIMVASTATIN. [Suspect]
     Active Substance: SIMVASTATIN
     Dosage: 20 MG, DAILY
  2. LEVOTHYROXINE SODIUM. [Suspect]
     Active Substance: LEVOTHYROXINE SODIUM
     Dosage: 50 UG, UNK
  3. LEVOTHYROXINE SODIUM. [Suspect]
     Active Substance: LEVOTHYROXINE SODIUM
     Dosage: 25 UG, UNK

REACTIONS (3)
  - Myalgia [Not Recovered/Not Resolved]
  - Urticaria [Recovered/Resolved]
  - Arthralgia [Not Recovered/Not Resolved]
